FAERS Safety Report 7936118-6 (Version None)
Quarter: 2011Q4

REPORT INFORMATION
  Report Type: 
  Country: None (occurrence: None)
  Receive Date: 20111123
  Receipt Date: 20111117
  Transmission Date: 20120403
  Serious: Yes (Other)
  Sender: FDA-Public Use
  Company Number: CL-BRISTOL-MYERS SQUIBB COMPANY-16238628

PATIENT
  Sex: Female

DRUGS (2)
  1. GLAFORNIL [Concomitant]
  2. ORENCIA [Suspect]
     Indication: RHEUMATOID ARTHRITIS
     Dates: start: 20090501

REACTIONS (1)
  - PORTAL HYPERTENSION [None]
